FAERS Safety Report 23522594 (Version 1)
Quarter: 2024Q1

REPORT INFORMATION
  Report Type: 
  Country: None (occurrence: None)
  Receive Date: 20240214
  Receipt Date: 20240214
  Transmission Date: 20240410
  Serious: No
  Sender: FDA-Public Use
  Company Number: GR-BoehringerIngelheim-2024-BI-006499

PATIENT

DRUGS (1)
  1. ALTEPLASE [Suspect]
     Active Substance: ALTEPLASE

REACTIONS (10)
  - Haemorrhoids [None]
  - Clostridium test positive [None]
  - Haematuria [None]
  - Partial seizures [None]
  - Supraventricular tachycardia [None]
  - Hypotension [None]
  - Hyperhidrosis [None]
  - Fibrin D dimer increased [None]
  - Pulmonary embolism [None]
  - Diarrhoea haemorrhagic [None]
